FAERS Safety Report 23447424 (Version 1)
Quarter: 2024Q1

REPORT INFORMATION
  Report Type: Spontaneous
  Country: US (occurrence: None)
  Receive Date: 20240126
  Receipt Date: 20240126
  Transmission Date: 20240409
  Serious: Yes (Hospitalization)
  Sender: FDA-Public Use
  Company Number: None

PATIENT
  Age: 67 Year
  Sex: Female
  Weight: 89.5 kg

DRUGS (4)
  1. KEYTRUDA [Suspect]
     Active Substance: PEMBROLIZUMAB
     Indication: Ovarian cancer recurrent
     Dosage: 200 MG EVERY 3 WEEKS INTRAVENOUS
     Route: 042
     Dates: start: 20231019, end: 20240104
  2. LENVIMA [Suspect]
     Active Substance: LENVATINIB
     Indication: Ovarian cancer recurrent
     Dosage: FREQUENCY : DAILY;?14 MG DAILY ORAL
     Route: 048
     Dates: start: 20231019, end: 20240124
  3. TAXOL [Suspect]
     Active Substance: PACLITAXEL
     Dates: start: 20231019, end: 20240103
  4. Weekly taxol 50mg/m2 [Concomitant]
     Dates: start: 20240104

REACTIONS (5)
  - Fatigue [None]
  - Strabismus [None]
  - Strabismus [None]
  - IVth nerve paralysis [None]
  - Malignant neoplasm progression [None]

NARRATIVE: CASE EVENT DATE: 20240125
